FAERS Safety Report 15048722 (Version 1)
Quarter: 2018Q2

REPORT INFORMATION
  Report Type: Spontaneous
  Country: US (occurrence: US)
  Receive Date: 20180622
  Receipt Date: 20180622
  Transmission Date: 20180711
  Serious: No
  Sender: FDA-Public Use
  Company Number: US-PFIZER INC-2018248944

PATIENT
  Age: 45 Year
  Sex: Male

DRUGS (2)
  1. IMIPRAMINE [Interacting]
     Active Substance: IMIPRAMINE
     Dosage: UNK
  2. SOLU-MEDROL [Suspect]
     Active Substance: METHYLPREDNISOLONE SODIUM SUCCINATE
     Dosage: UNK

REACTIONS (3)
  - Drug interaction [Unknown]
  - Panic attack [Unknown]
  - Euphoric mood [Unknown]
